FAERS Safety Report 13367606 (Version 2)
Quarter: 2017Q2

REPORT INFORMATION
  Report Type: Spontaneous
  Country: IT (occurrence: IT)
  Receive Date: 20170324
  Receipt Date: 20170609
  Transmission Date: 20170830
  Serious: Yes (Death, Other)
  Sender: FDA-Public Use
  Company Number: IT-TAKEDA-2017MPI002536

PATIENT

DRUGS (7)
  1. VELCADE [Suspect]
     Active Substance: BORTEZOMIB
     Dosage: 1.3 MG/M2, UNK
     Route: 042
  2. VELCADE [Suspect]
     Active Substance: BORTEZOMIB
     Dosage: 1.3 MG/M2, UNK
     Route: 042
  3. MELPHALAN. [Suspect]
     Active Substance: MELPHALAN
     Indication: PLASMA CELL MYELOMA
     Dosage: 9 MG/M2, UNK
     Route: 048
  4. THALIDOMIDE [Suspect]
     Active Substance: THALIDOMIDE
     Dosage: 50 MG, QD
     Route: 065
  5. VELCADE [Suspect]
     Active Substance: BORTEZOMIB
     Indication: PLASMA CELL MYELOMA
     Dosage: 1.3 MG/M2, Q2WEEKS
     Route: 042
  6. THALIDOMIDE [Suspect]
     Active Substance: THALIDOMIDE
     Indication: PLASMA CELL MYELOMA
     Dosage: 50 MG, QD
     Route: 065
  7. PREDNISONE. [Suspect]
     Active Substance: PREDNISONE
     Indication: PLASMA CELL MYELOMA
     Dosage: 60 MG/M2, UNK
     Route: 048

REACTIONS (21)
  - Neuralgia [Unknown]
  - Peripheral sensory neuropathy [Unknown]
  - Constipation [Unknown]
  - Fatigue [Unknown]
  - Pyrexia [Unknown]
  - Skin disorder [Unknown]
  - Anaemia [Unknown]
  - Infection [Fatal]
  - Cardiac disorder [Fatal]
  - Neuropathy peripheral [Unknown]
  - Thrombocytopenia [Unknown]
  - Vomiting [Unknown]
  - Pulmonary embolism [Unknown]
  - Diarrhoea [Unknown]
  - Death [Fatal]
  - Deep vein thrombosis [Unknown]
  - Neutropenia [Unknown]
  - Haemorrhage [Unknown]
  - Nausea [Unknown]
  - Lung disorder [Fatal]
  - Adverse event [Unknown]
